FAERS Safety Report 18457150 (Version 1)
Quarter: 2020Q4

REPORT INFORMATION
  Report Type: Spontaneous
  Country: US (occurrence: US)
  Receive Date: 20201102
  Receipt Date: 20201102
  Transmission Date: 20210114
  Serious: Yes (Death, Life-Threatening, Other)
  Sender: FDA-Public Use
  Company Number: None

PATIENT
  Age: 94 Year
  Sex: Female
  Weight: 51.75 kg

DRUGS (5)
  1. VIT B-12 [Concomitant]
  2. THIAMINE. [Concomitant]
     Active Substance: THIAMINE
  3. ACID ASCORBIC [Concomitant]
  4. IRON [Concomitant]
     Active Substance: IRON
  5. PEPCID AC [Suspect]
     Active Substance: FAMOTIDINE
     Indication: GASTRIC ULCER
     Dosage: ?          OTHER ROUTE:DON^T KNOW, NEVER BEEN INFORMED BY NURSE?

REACTIONS (7)
  - Hypertension [None]
  - Haematochezia [None]
  - Lung disorder [None]
  - Mouth haemorrhage [None]
  - Dyspnoea [None]
  - Heart rate increased [None]
  - Dizziness [None]

NARRATIVE: CASE EVENT DATE: 20201003
